FAERS Safety Report 4415254-5 (Version None)
Quarter: 2004Q3

REPORT INFORMATION
  Report Type: 
  Country: None (occurrence: None)
  Receive Date: 20040729
  Receipt Date: 20040716
  Transmission Date: 20050211
  Serious: Yes (Disabling)
  Sender: FDA-Public Use
  Company Number: 04H-087-0267579-00

PATIENT
  Age: 75 Year
  Sex: Female
  Weight: 60 kg

DRUGS (1)
  1. MARCAINE [Suspect]
     Indication: ANAESTHESIA
     Dosage: 4 ML

REACTIONS (16)
  - ANAESTHETIC COMPLICATION [None]
  - ANORECTAL DISORDER [None]
  - ANOREXIA [None]
  - ARACHNOIDITIS [None]
  - BEDRIDDEN [None]
  - BLADDER DISORDER [None]
  - BUTTOCK PAIN [None]
  - DEPRESSED LEVEL OF CONSCIOUSNESS [None]
  - DIPLEGIA [None]
  - HYDROCEPHALUS [None]
  - INFLAMMATION [None]
  - LETHARGY [None]
  - NERVE ROOT LESION [None]
  - NERVOUS SYSTEM DISORDER [None]
  - POST PROCEDURAL COMPLICATION [None]
  - SENSORIMOTOR DISORDER [None]
